FAERS Safety Report 9704654 (Version 3)
Quarter: 2013Q4

REPORT INFORMATION
  Report Type: Spontaneous
  Country: US (occurrence: US)
  Receive Date: 20131122
  Receipt Date: 20131216
  Transmission Date: 20140711
  Serious: Yes (Hospitalization, Other)
  Sender: FDA-Public Use
  Company Number: US-GILEAD-2013-0088261

PATIENT
  Sex: Female

DRUGS (3)
  1. LETAIRIS [Suspect]
     Indication: PULMONARY HYPERTENSION
     Dosage: 10 MG, QD
     Route: 065
     Dates: start: 20130430
  2. LETAIRIS [Suspect]
     Indication: COLLAGEN-VASCULAR DISEASE
  3. WARFARIN SODIUM [Concomitant]

REACTIONS (3)
  - Pneumonia [Unknown]
  - Heart rate irregular [Unknown]
  - Dyspnoea [Unknown]
